APPROVED DRUG PRODUCT: DOXYCHEL
Active Ingredient: DOXYCYCLINE
Strength: EQ 25MG BASE/5ML
Dosage Form/Route: FOR SUSPENSION;ORAL
Application: A061720 | Product #001
Applicant: RACHELLE LABORATORIES INC
Approved: Approved Prior to Jan 1, 1982 | RLD: No | RS: No | Type: DISCN